FAERS Safety Report 15255089 (Version 2)
Quarter: 2018Q3

REPORT INFORMATION
  Report Type: Spontaneous
  Country: US (occurrence: US)
  Receive Date: 20180808
  Receipt Date: 20180831
  Transmission Date: 20181010
  Serious: No
  Sender: FDA-Public Use
  Company Number: US-PFIZER INC-2018315644

PATIENT
  Age: 82 Year
  Sex: Female

DRUGS (1)
  1. XELJANZ XR [Suspect]
     Active Substance: TOFACITINIB CITRATE
     Indication: RHEUMATOID ARTHRITIS
     Dosage: 11 MG, 1X/DAY
     Dates: start: 201803

REACTIONS (8)
  - Neuralgia [Recovered/Resolved]
  - Somnolence [Recovered/Resolved]
  - Musculoskeletal stiffness [Recovered/Resolved]
  - Balance disorder [Unknown]
  - Neck pain [Recovered/Resolved]
  - Joint range of motion decreased [Recovered/Resolved]
  - Arthralgia [Recovered/Resolved]
  - Sciatica [Recovered/Resolved]

NARRATIVE: CASE EVENT DATE: 20180725
